FAERS Safety Report 8726853 (Version 3)
Quarter: 2015Q3

REPORT INFORMATION
  Report Type: Report from Study
  Country: US (occurrence: US)
  Receive Date: 20120816
  Receipt Date: 20150710
  Transmission Date: 20151125
  Serious: Yes (Death, Hospitalization, Other)
  Sender: FDA-Public Use
  Company Number: US-ROCHE-1098205

PATIENT
  Sex: Male

DRUGS (6)
  1. NITROGLYCERIN. [Concomitant]
     Active Substance: NITROGLYCERIN
     Route: 060
  2. ACTIVASE [Suspect]
     Active Substance: ALTEPLASE
     Indication: ACUTE MYOCARDIAL INFARCTION
     Dosage: 100 MG/ML
     Route: 040
  3. LOPRESSOR [Concomitant]
     Active Substance: METOPROLOL TARTRATE
     Route: 042
  4. PRONESTYL [Concomitant]
     Active Substance: PROCAINAMIDE HYDROCHLORIDE
     Route: 065
  5. HEPARIN [Concomitant]
     Active Substance: HEPARIN SODIUM
  6. SODIUM BICARBONATE. [Concomitant]
     Active Substance: SODIUM BICARBONATE

REACTIONS (10)
  - Tachyarrhythmia [Unknown]
  - Death [Fatal]
  - Cardiac arrest [Fatal]
  - Respiratory arrest [Fatal]
  - Ventricular extrasystoles [Unknown]
  - Bradyarrhythmia [Unknown]
  - Electrocardiogram P wave abnormal [Unknown]
  - Seizure [Fatal]
  - Ventricular tachycardia [Fatal]
  - Nausea [Unknown]
